FAERS Safety Report 8221453-7 (Version None)
Quarter: 2012Q1

REPORT INFORMATION
  Report Type: 
  Country: None (occurrence: None)
  Receive Date: 20120320
  Receipt Date: 20120314
  Transmission Date: 20120608
  Serious: No
  Sender: FDA-Public Use
  Company Number: US-PFIZER INC-2012067793

PATIENT
  Sex: Female
  Weight: 90.703 kg

DRUGS (4)
  1. SIMVASTATIN [Concomitant]
     Indication: BLOOD CHOLESTEROL INCREASED
     Dosage: UNK
  2. CYMBALTA [Concomitant]
     Indication: DEPRESSION
     Dosage: UNK
  3. NEURONTIN [Suspect]
     Indication: FIBROMYALGIA
     Dosage: UNK, 2X/DAY
     Dates: start: 20110501, end: 20110701
  4. CYMBALTA [Concomitant]
     Indication: FIBROMYALGIA

REACTIONS (4)
  - DRUG INEFFECTIVE [None]
  - ANXIETY [None]
  - TIC [None]
  - TREMOR [None]
